FAERS Safety Report 15411117 (Version 1)
Quarter: 2018Q3

REPORT INFORMATION
  Report Type: Spontaneous
  Country: DE (occurrence: DE)
  Receive Date: 20180921
  Receipt Date: 20180921
  Transmission Date: 20181010
  Serious: Yes (Death, Other)
  Sender: FDA-Public Use
  Company Number: DE-SUN PHARMACEUTICAL INDUSTRIES LTD-2018RR-185094

PATIENT
  Age: 52 Year
  Sex: Female
  Weight: 57 kg

DRUGS (26)
  1. 5?FU [Suspect]
     Active Substance: FLUOROURACIL
     Indication: RECTAL CANCER METASTATIC
     Dosage: 3120 MG, UNK
     Route: 041
     Dates: start: 20131105, end: 20131107
  2. BISOPROLOL [Concomitant]
     Active Substance: BISOPROLOL
     Indication: HYPERTENSION
     Dosage: 7.5 MG, UNK
     Route: 048
     Dates: start: 20131203
  3. HALOPERIDOL. [Concomitant]
     Active Substance: HALOPERIDOL
     Indication: ANXIETY
  4. OXALIPLATIN. [Suspect]
     Active Substance: OXALIPLATIN
     Dosage: 160 MG, UNK
     Route: 042
     Dates: start: 20131105, end: 20131105
  5. DEXAMETHASON [Concomitant]
     Active Substance: DEXAMETHASONE
     Indication: PRODUCT USED FOR UNKNOWN INDICATION
     Dosage: 4 MG, UNK
     Route: 042
     Dates: start: 20130925
  6. MCP [Concomitant]
     Active Substance: METOCLOPRAMIDE HYDROCHLORIDE
     Indication: NAUSEA
     Dosage: 35 GTT, UNK
     Route: 048
     Dates: end: 201309
  7. AVASTIN [Suspect]
     Active Substance: BEVACIZUMAB
     Dosage: 285 MG, UNK
     Route: 042
     Dates: start: 20140103
  8. 5?FU [Suspect]
     Active Substance: FLUOROURACIL
     Dosage: 3120 MG, UNK
     Route: 041
     Dates: start: 20131008, end: 20131010
  9. HALOPERIDOL. [Concomitant]
     Active Substance: HALOPERIDOL
     Indication: DEPRESSION
     Dosage: 35 DF, UNK
     Route: 048
     Dates: start: 20131008
  10. MCP [Concomitant]
     Active Substance: METOCLOPRAMIDE HYDROCHLORIDE
     Indication: VOMITING
  11. OXALIPLATIN. [Suspect]
     Active Substance: OXALIPLATIN
     Dosage: 160 MG, UNK
     Route: 042
     Dates: start: 20131008, end: 20131008
  12. OXALIPLATIN. [Suspect]
     Active Substance: OXALIPLATIN
     Dosage: 160 MG, UNK
     Route: 042
     Dates: start: 20131203, end: 20131203
  13. OXALIPLATIN. [Suspect]
     Active Substance: OXALIPLATIN
     Indication: RECTAL CANCER METASTATIC
     Dosage: 160 MG, UNK
     Route: 042
     Dates: start: 20130924, end: 20130924
  14. 5?FU [Suspect]
     Active Substance: FLUOROURACIL
     Dosage: 3120 MG, UNK
     Route: 041
     Dates: start: 20140103, end: 20140103
  15. 5?FU [Suspect]
     Active Substance: FLUOROURACIL
     Dosage: 3120 MG, UNK
     Route: 041
     Dates: start: 20131022, end: 20131024
  16. AVASTIN [Suspect]
     Active Substance: BEVACIZUMAB
     Indication: RECTAL CANCER METASTATIC
     Dosage: PATIENT RECEIVED 285 MG IN 250 ML NACL AS 30 MINUTES INFUSION DURING EACH THERAPY (DAY 1, 15, 29 AND
     Route: 042
     Dates: start: 20130924
  17. 5?FU [Suspect]
     Active Substance: FLUOROURACIL
     Dosage: 3120 MG, UNK
     Route: 041
     Dates: start: 20131119, end: 20131121
  18. OXALIPLATIN. [Suspect]
     Active Substance: OXALIPLATIN
     Indication: PRODUCT USED FOR UNKNOWN INDICATION
     Dosage: 160 MG, UNK
     Route: 042
     Dates: start: 20131022, end: 20131022
  19. AVASTIN [Suspect]
     Active Substance: BEVACIZUMAB
     Indication: PRODUCT USED FOR UNKNOWN INDICATION
     Dosage: 285 MG, UNK
     Route: 042
     Dates: start: 20131022
  20. 5?FU [Suspect]
     Active Substance: FLUOROURACIL
     Dosage: 3120 MG, UNK
     Route: 041
     Dates: start: 20131203, end: 20131205
  21. 5?FU [Suspect]
     Active Substance: FLUOROURACIL
     Dosage: 3120 MG, UNK
     Route: 041
     Dates: start: 20130924, end: 20130926
  22. AMLODIPIN [Concomitant]
     Active Substance: AMLODIPINE BESYLATE
     Indication: HYPERTENSION
     Dosage: 2.5 MG, UNK
     Route: 048
     Dates: start: 20131022
  23. OXALIPLATIN. [Suspect]
     Active Substance: OXALIPLATIN
     Dosage: 160 MG, UNK
     Route: 042
     Dates: start: 20130103, end: 20140103
  24. OXALIPLATIN. [Suspect]
     Active Substance: OXALIPLATIN
     Dosage: 160 MG, UNK
     Route: 042
     Dates: start: 20131119, end: 20131119
  25. 5?FU [Suspect]
     Active Substance: FLUOROURACIL
     Dosage: 600 MG, UNK
     Route: 040
     Dates: start: 20130924, end: 20130924
  26. SODIUM CHLORIDE. [Concomitant]
     Active Substance: SODIUM CHLORIDE
     Indication: PRODUCT USED FOR UNKNOWN INDICATION
     Dosage: 250 ML, UNK
     Route: 065
     Dates: start: 20130924

REACTIONS (8)
  - Vomiting [Recovered/Resolved]
  - Urinary retention [Recovered/Resolved]
  - Diarrhoea [Recovered/Resolved]
  - Nausea [Recovered/Resolved]
  - Agitation [Recovered/Resolved]
  - Multiple organ dysfunction syndrome [Fatal]
  - Tachycardia [Recovered/Resolved]
  - Restlessness [Recovered/Resolved]

NARRATIVE: CASE EVENT DATE: 20130925
